FAERS Safety Report 17993623 (Version 1)
Quarter: 2020Q3

REPORT INFORMATION
  Report Type: Spontaneous
  Country: US (occurrence: US)
  Receive Date: 20200707
  Receipt Date: 20200707
  Transmission Date: 20201103
  Serious: Yes (Death)
  Sender: FDA-Public Use
  Company Number: None

PATIENT
  Age: 84 Year
  Sex: Male
  Weight: 87.5 kg

DRUGS (12)
  1. DEXAMETHASONE 6 MG TAB [Concomitant]
     Dates: start: 20200629, end: 20200701
  2. CEFTRIAXONE 1 GM IV [Concomitant]
     Dates: start: 20200630, end: 20200702
  3. METOPROLOL 50 MG TAB [Concomitant]
     Dates: start: 20200629, end: 20200701
  4. REMDESIVIR. [Suspect]
     Active Substance: REMDESIVIR
     Indication: COVID-19
     Route: 040
     Dates: start: 20200630, end: 20200701
  5. APIXABAN 2.5 MG [Concomitant]
     Active Substance: APIXABAN
     Dates: start: 20200629, end: 20200701
  6. NOREPINEPHRINE IV [Concomitant]
     Dates: start: 20200701, end: 20200702
  7. VASOPRESSIN IV [Concomitant]
     Dates: start: 20200701, end: 20200702
  8. FAMOTIDINE 20 MG IV [Concomitant]
     Dates: start: 20200701, end: 20200702
  9. PROPOFOL IV [Concomitant]
     Active Substance: PROPOFOL
     Dates: start: 20200701, end: 20200702
  10. AZITHROMYCIN 500 MG TAB [Concomitant]
     Dates: start: 20200630, end: 20200701
  11. ALBUTEROL?IPRATROPIUM 3 ML [Concomitant]
     Dates: start: 20200701, end: 20200702
  12. FENTANYL IV [Concomitant]
     Active Substance: FENTANYL
     Dates: start: 20200701, end: 20200702

REACTIONS (1)
  - Multiple organ dysfunction syndrome [None]
